FAERS Safety Report 6042370-7 (Version None)
Quarter: 2009Q1

REPORT INFORMATION
  Report Type: 
  Country: None (occurrence: None)
  Receive Date: 20090116
  Receipt Date: 20090105
  Transmission Date: 20090719
  Serious: Yes (Hospitalization)
  Sender: FDA-Public Use
  Company Number: GB-GENENTECH-275412

PATIENT
  Sex: Male

DRUGS (4)
  1. RITUXIMAB [Suspect]
     Indication: MANTLE CELL LYMPHOMA
     Dosage: 700 MG, UNK
     Route: 042
     Dates: start: 20080115, end: 20080115
  2. FLUDARABINE [Suspect]
     Indication: MANTLE CELL LYMPHOMA
     Dosage: 60 MG, UNK
     Route: 042
     Dates: start: 20080115, end: 20080117
  3. CYCLOPHOSPHAMIDE [Suspect]
     Indication: MANTLE CELL LYMPHOMA
     Dosage: 400 MG, UNK
     Route: 042
     Dates: start: 20080115, end: 20080117
  4. ACYCLOVIR SODIUM [Concomitant]
     Indication: DRUG USE FOR UNKNOWN INDICATION
     Dosage: UNK

REACTIONS (2)
  - FEBRILE NEUTROPENIA [None]
  - NEUTROPENIC SEPSIS [None]
